FAERS Safety Report 5590280-1 (Version None)
Quarter: 2008Q1

REPORT INFORMATION
  Report Type: 
  Country: None (occurrence: None)
  Receive Date: 20080114
  Receipt Date: 20080110
  Transmission Date: 20080703
  Serious: Yes (Death)
  Sender: FDA-Public Use
  Company Number: US-ASTRAZENECA-2008AC00146

PATIENT
  Age: 50 Year
  Sex: Female

DRUGS (4)
  1. ATENOLOL [Suspect]
     Route: 048
  2. VENLAFAXINE HCL [Suspect]
     Route: 048
  3. VALPROIC ACID [Suspect]
     Route: 048
  4. METFORMIN HCL [Suspect]
     Route: 048

REACTIONS (2)
  - CARDIO-RESPIRATORY ARREST [None]
  - COMPLETED SUICIDE [None]
